FAERS Safety Report 13460783 (Version 1)
Quarter: 2017Q2

REPORT INFORMATION
  Report Type: Spontaneous
  Country: US (occurrence: US)
  Receive Date: 20170420
  Receipt Date: 20170420
  Transmission Date: 20170830
  Serious: No
  Sender: FDA-Public Use
  Company Number: US-TEVA-679928USA

PATIENT
  Sex: Female

DRUGS (5)
  1. VITAMIN B12 [Concomitant]
     Active Substance: CYANOCOBALAMIN
  2. LOSARTAN. [Suspect]
     Active Substance: LOSARTAN
     Dosage: UNKNOWN FORM STRENGTH
  3. COENZYME Q10 [Concomitant]
     Active Substance: UBIDECARENONE
  4. VITAMIN D3 [Concomitant]
     Active Substance: CHOLECALCIFEROL
  5. PRAVASTATIN. [Suspect]
     Active Substance: PRAVASTATIN
     Route: 048
     Dates: start: 20160202, end: 20160719

REACTIONS (19)
  - Malaise [Unknown]
  - Dizziness [Recovering/Resolving]
  - Aphonia [Unknown]
  - Hallucination [Recovering/Resolving]
  - Diplopia [Recovering/Resolving]
  - Loss of personal independence in daily activities [Unknown]
  - Myalgia [Recovering/Resolving]
  - Pain [Unknown]
  - Restlessness [Unknown]
  - Paraesthesia [Unknown]
  - Dehydration [Unknown]
  - Headache [Unknown]
  - Asthenia [Not Recovered/Not Resolved]
  - Fatigue [Not Recovered/Not Resolved]
  - Gait disturbance [Unknown]
  - Dry mouth [Unknown]
  - Sleep terror [Unknown]
  - Dyspnoea [Recovering/Resolving]
  - Depression [Recovering/Resolving]
